FAERS Safety Report 19876892 (Version 1)
Quarter: 2021Q3

REPORT INFORMATION
  Report Type: Spontaneous
  Country: CA (occurrence: CA)
  Receive Date: 20210923
  Receipt Date: 20210923
  Transmission Date: 20211014
  Serious: Yes (Life-Threatening, Other)
  Sender: FDA-Public Use
  Company Number: CA-TEVA-2021-CA-1955756

PATIENT
  Age: 14 Year
  Sex: Male
  Weight: 43 kg

DRUGS (38)
  1. ALTEPLASE (T?PA) [Concomitant]
  2. CYTARABINE INJECTION [Concomitant]
     Active Substance: CYTARABINE
  3. DIPHENHYDRAMINE. [Concomitant]
     Active Substance: DIPHENHYDRAMINE
  4. LEUCOVORIN. [Concomitant]
     Active Substance: LEUCOVORIN
  5. PIPERACILLIN/TAZOBACTAM [Concomitant]
     Active Substance: PIPERACILLIN SODIUM\TAZOBACTAM SODIUM
  6. RITUXAN [Suspect]
     Active Substance: RITUXIMAB
     Route: 042
  7. FASTURTEC [Concomitant]
     Active Substance: RASBURICASE
  8. MAGNESIUM [Concomitant]
     Active Substance: MAGNESIUM
  9. FLUCONAZOLE. [Concomitant]
     Active Substance: FLUCONAZOLE
  10. VINCRISTINE SULFATE. [Suspect]
     Active Substance: VINCRISTINE SULFATE
     Indication: BURKITT^S LYMPHOMA
     Route: 042
  11. VINCRISTINE SULFATE. [Suspect]
     Active Substance: VINCRISTINE SULFATE
     Route: 042
  12. PREDNISONE. [Concomitant]
     Active Substance: PREDNISONE
  13. ACETAMINOPHEN. [Concomitant]
     Active Substance: ACETAMINOPHEN
  14. ONDANSETRON [Concomitant]
     Active Substance: ONDANSETRON
  15. ZINC. [Concomitant]
     Active Substance: ZINC
  16. METHOTREXATE. [Suspect]
     Active Substance: METHOTREXATE
     Route: 042
  17. FUROSEMIDE. [Concomitant]
     Active Substance: FUROSEMIDE
  18. METHOTREXATE. [Suspect]
     Active Substance: METHOTREXATE
     Indication: BURKITT^S LYMPHOMA
     Route: 042
  19. CEFTAZIDIME. [Concomitant]
     Active Substance: CEFTAZIDIME
  20. HYDROXYZINE [Concomitant]
     Active Substance: HYDROXYZINE HYDROCHLORIDE
  21. OLANZAPINE. [Concomitant]
     Active Substance: OLANZAPINE
  22. PENTAMIDINE ISETHIONATE INJ300MG/VIAL BP [Concomitant]
  23. RANITIDINE. [Concomitant]
     Active Substance: RANITIDINE
  24. SODIUM PHOSPHATE [Concomitant]
     Active Substance: SODIUM PHOSPHATE
  25. VANCOMYCIN [Concomitant]
     Active Substance: VANCOMYCIN
  26. DOXORUBICIN HYDROCHLORIDE INJECTION [Suspect]
     Active Substance: DOXORUBICIN HYDROCHLORIDE
     Indication: BURKITT^S LYMPHOMA
     Route: 042
  27. DOXORUBICIN HYDROCHLORIDE INJECTION [Suspect]
     Active Substance: DOXORUBICIN HYDROCHLORIDE
     Route: 042
  28. RITUXAN [Suspect]
     Active Substance: RITUXIMAB
     Indication: BURKITT^S LYMPHOMA
     Route: 042
  29. EPINEPHRINE. [Concomitant]
     Active Substance: EPINEPHRINE
  30. HYDROCORTISONE. [Concomitant]
     Active Substance: HYDROCORTISONE
  31. CYCLOPHOSPHAMIDE. [Suspect]
     Active Substance: CYCLOPHOSPHAMIDE
     Indication: BURKITT^S LYMPHOMA
     Dosage: 700 MILLIGRAM DAILY;
     Route: 042
  32. CYCLOPHOSPHAMIDE. [Suspect]
     Active Substance: CYCLOPHOSPHAMIDE
     Route: 042
  33. POTASSIUM [Concomitant]
     Active Substance: POTASSIUM
  34. ACYCLOVIR. [Concomitant]
     Active Substance: ACYCLOVIR
  35. ALLOPURINOL. [Concomitant]
     Active Substance: ALLOPURINOL
  36. METHYLPREDNISOLONE NOS [Concomitant]
     Active Substance: METHYLPREDNISOLONE
  37. POLYETHYLENE GLYCOL [Concomitant]
     Active Substance: POLYETHYLENE GLYCOLS
  38. VALACYCLOVIR [Concomitant]
     Active Substance: VALACYCLOVIR HYDROCHLORIDE

REACTIONS (2)
  - Aplastic anaemia [Recovered/Resolved]
  - Stomatitis [Recovered/Resolved]
